FAERS Safety Report 6372750-1 (Version None)
Quarter: 2009Q3

REPORT INFORMATION
  Report Type: 
  Country: None (occurrence: None)
  Receive Date: 20090924
  Receipt Date: 20081104
  Transmission Date: 20100115
  Serious: Yes (Other)
  Sender: FDA-Public Use
  Company Number: US-ASTRAZENECA-2008UW24717

PATIENT
  Age: 12 Year
  Sex: Male

DRUGS (4)
  1. SEROQUEL [Suspect]
     Dosage: IN THE AM AND AT NIGHT
     Route: 048
  2. TOPAMAX [Concomitant]
  3. TEGRETOL [Concomitant]
  4. CLONIDINE [Concomitant]

REACTIONS (1)
  - TARDIVE DYSKINESIA [None]
